FAERS Safety Report 8803031 (Version 2)
Quarter: 2013Q1

REPORT INFORMATION
  Report Type: Spontaneous
  Country: US (occurrence: US)
  Receive Date: 20120924
  Receipt Date: 20130114
  Transmission Date: 20140127
  Serious: Yes (Hospitalization, Other)
  Sender: FDA-Public Use
  Company Number: US-009507513-1109USA02132

PATIENT
  Sex: 0

DRUGS (5)
  1. FOSAMAX [Suspect]
     Indication: OSTEOPENIA
     Dosage: 70 MG, QW
     Route: 048
     Dates: start: 20030418, end: 201004
  2. ASCORBIC ACID [Concomitant]
     Dates: start: 19720101
  3. CALCIUM (UNSPECIFIED) [Concomitant]
     Dates: start: 1995
  4. MK-9278 [Concomitant]
     Dates: start: 19860101
  5. VITAMIN B (UNSPECIFIED) [Concomitant]
     Dates: start: 19910101

REACTIONS (13)
  - Femoral neck fracture [Unknown]
  - Hip arthroplasty [Unknown]
  - Fall [Unknown]
  - Low turnover osteopathy [Unknown]
  - Blood cholesterol increased [Unknown]
  - Asthma [Unknown]
  - Gingivitis [Unknown]
  - Vitamin D deficiency [Unknown]
  - Excoriation [Unknown]
  - Anaemia postoperative [Unknown]
  - Dehydration [Unknown]
  - Hyperglycaemia [Unknown]
  - Hypokalaemia [Unknown]
